FAERS Safety Report 9391141 (Version 2)
Quarter: 2013Q3

REPORT INFORMATION
  Report Type: Spontaneous
  Country: US (occurrence: US)
  Receive Date: 20130709
  Receipt Date: 20130807
  Transmission Date: 20140515
  Serious: No
  Sender: FDA-Public Use
  Company Number: US-JNJFOC-20130620632

PATIENT
  Sex: Male
  Weight: 65.77 kg

DRUGS (7)
  1. DURAGESIC [Suspect]
     Indication: ABDOMINAL PAIN
     Route: 062
  2. DURAGESIC [Suspect]
     Indication: ABDOMINAL PAIN
     Route: 062
     Dates: start: 2009
  3. REMERON [Concomitant]
     Indication: DEPRESSION
     Route: 048
     Dates: start: 2003
  4. LYRICA [Concomitant]
     Indication: CONVULSION
     Route: 048
     Dates: start: 2007
  5. KLONOPIN [Concomitant]
     Indication: CONVULSION PROPHYLAXIS
     Route: 048
     Dates: start: 2003
  6. KLONOPIN [Concomitant]
     Indication: ANXIETY
     Route: 048
     Dates: start: 2003
  7. OXYCODONE [Concomitant]
     Indication: BREAKTHROUGH PAIN
     Dosage: ONE OR TWO
     Route: 048
     Dates: start: 2009

REACTIONS (4)
  - Inappropriate schedule of drug administration [Unknown]
  - Acne [Unknown]
  - Wrong technique in drug usage process [Unknown]
  - Product quality issue [Unknown]
